FAERS Safety Report 16981133 (Version 1)
Quarter: 2019Q4

REPORT INFORMATION
  Report Type: Report from Study
  Country: US (occurrence: US)
  Receive Date: 20191031
  Receipt Date: 20191031
  Transmission Date: 20200122
  Serious: No
  Sender: FDA-Public Use
  Company Number: NVSC2019US017802

PATIENT
  Sex: Female
  Weight: 87.98 kg

DRUGS (1)
  1. TREPROSTINIL. [Suspect]
     Active Substance: TREPROSTINIL
     Indication: PULMONARY ARTERIAL HYPERTENSION
     Dosage: 136 NG/KG/MIN- CONTINUOUS
     Route: 042
     Dates: start: 20190423

REACTIONS (2)
  - Cholelithiasis [Unknown]
  - Dyspnoea [Unknown]
